FAERS Safety Report 18778590 (Version 2)
Quarter: 2021Q1

REPORT INFORMATION
  Report Type: Report from Study
  Country: JP (occurrence: JP)
  Receive Date: 20210124
  Receipt Date: 20210211
  Transmission Date: 20210419
  Serious: Yes (Other)
  Sender: FDA-Public Use
  Company Number: JP-JNJFOC-20210129459

PATIENT

DRUGS (6)
  1. 5?AMINOSALICYLIC ACID [Concomitant]
     Active Substance: MESALAMINE
  2. AZATHIOPRINE. [Concomitant]
     Active Substance: AZATHIOPRINE
  3. REMICADE [Suspect]
     Active Substance: INFLIXIMAB
     Indication: COLITIS ULCERATIVE
  4. REMICADE [Suspect]
     Active Substance: INFLIXIMAB
     Indication: CROHN^S DISEASE
  5. REMICADE [Suspect]
     Active Substance: INFLIXIMAB
     Indication: INFLAMMATORY BOWEL DISEASE
     Route: 042
  6. MERCAPTOPURINE. [Concomitant]
     Active Substance: MERCAPTOPURINE

REACTIONS (3)
  - Therapeutic response decreased [Unknown]
  - Tuberculosis [Unknown]
  - Drug-induced liver injury [Unknown]
